FAERS Safety Report 9859136 (Version 1)
Quarter: 2014Q1

REPORT INFORMATION
  Report Type: Spontaneous
  Country: GB (occurrence: None)
  Receive Date: 20140129
  Receipt Date: 20140129
  Transmission Date: 20141002
  Serious: Yes (Other)
  Sender: FDA-Public Use
  Company Number: AUR-APL-2014-00643

PATIENT
  Age: 43 Year
  Sex: Male

DRUGS (3)
  1. RIBAVIRIN (RIBAVIRIN) [Suspect]
     Indication: HEPATITIS C
     Dosage: 2 DOSAGE FORMS (1 DOSAGE FORMS, 2 IN 1 D), ORAL
     Route: 048
     Dates: start: 20130108
  2. INCIVO (TELAPREVIR) [Suspect]
     Indication: HEPATITIS C
     Dosage: 2250 MG (750 MG, 3 IN 1 D), ORAL
     Route: 048
     Dates: start: 20130108
  3. INTERFERON (INTERFERON) [Suspect]
     Indication: HEPATITIS C
     Dosage: ONCE WEEKLY, SUBCUTANEOUS
     Route: 058
     Dates: start: 20130108

REACTIONS (8)
  - Anaemia [None]
  - Pruritus [None]
  - Rash [None]
  - Constipation [None]
  - Headache [None]
  - Breath odour [None]
  - Fatigue [None]
  - Dyspnoea exertional [None]
